FAERS Safety Report 8806728 (Version 1)
Quarter: 2012Q4

REPORT INFORMATION
  Report Type: 
  Country: DE (occurrence: DE)
  Receive Date: 20120925
  Receipt Date: 20120925
  Transmission Date: 20130627
  Serious: Yes (Hospitalization, Other)
  Sender: FDA-Public Use
  Company Number: GXKR2012DE003016

PATIENT
  Sex: Female

DRUGS (1)
  1. MINOCYCLIN HEXAL [Suspect]
     Indication: ARTHROPOD BITE
     Dosage: 100-150 mg/day
     Route: 048

REACTIONS (4)
  - Epilepsy [Unknown]
  - Eye movement disorder [Unknown]
  - Loss of consciousness [Unknown]
  - Muscle spasms [Unknown]
